FAERS Safety Report 18807404 (Version 2)
Quarter: 2021Q1

REPORT INFORMATION
  Report Type: Spontaneous
  Country: US (occurrence: US)
  Receive Date: 20210129
  Receipt Date: 20210216
  Transmission Date: 20210419
  Serious: Yes (Other)
  Sender: FDA-Public Use
  Company Number: US-MICRO LABS LIMITED-ML2021-00199

PATIENT
  Age: 68 Year
  Sex: Female

DRUGS (1)
  1. ACETAZOLAMIDE. [Suspect]
     Active Substance: ACETAZOLAMIDE
     Indication: GLAUCOMA

REACTIONS (3)
  - Delusion [Recovered/Resolved]
  - Paraesthesia [Recovered/Resolved]
  - Hallucination, visual [Recovered/Resolved]
